FAERS Safety Report 19415739 (Version 1)
Quarter: 2021Q2

REPORT INFORMATION
  Report Type: Spontaneous
  Country: US (occurrence: US)
  Receive Date: 20210614
  Receipt Date: 20210614
  Transmission Date: 20210717
  Serious: No
  Sender: FDA-Public Use
  Company Number: None

PATIENT
  Age: 11 Month
  Sex: Male
  Weight: 9.9 kg

DRUGS (4)
  1. AMOXICILLIN. [Suspect]
     Active Substance: AMOXICILLIN
     Indication: OTITIS MEDIA
     Dosage: ?          QUANTITY:5 ML;?
     Route: 048
     Dates: start: 20210604, end: 20210611
  2. COLD RELIEF DAYTIME AND NIGHTTIME [Concomitant]
  3. ZARBEE^S NATURALS BABY COUGH SYRUP [Concomitant]
     Active Substance: HERBALS
  4. BABY HYLAND^S MUCUS [Concomitant]

REACTIONS (3)
  - Vomiting [None]
  - Food intolerance [None]
  - Rash [None]

NARRATIVE: CASE EVENT DATE: 20210608
